FAERS Safety Report 19508256 (Version 1)
Quarter: 2021Q3

REPORT INFORMATION
  Report Type: Spontaneous
  Country: PL (occurrence: PL)
  Receive Date: 20210708
  Receipt Date: 20210708
  Transmission Date: 20211014
  Serious: Yes (Hospitalization)
  Sender: FDA-Public Use
  Company Number: NVSC2021PL149640

PATIENT
  Age: 6 Year
  Sex: Female
  Weight: 25.7 kg

DRUGS (1)
  1. AMOKSIKLAV [Suspect]
     Active Substance: AMOXICILLIN\CLAVULANATE POTASSIUM
     Indication: ANGINA PECTORIS
     Dosage: UNK
     Route: 048
     Dates: start: 20180818, end: 20180823

REACTIONS (1)
  - Rash [Recovered/Resolved]

NARRATIVE: CASE EVENT DATE: 20180827
